FAERS Safety Report 18440741 (Version 1)
Quarter: 2020Q4

REPORT INFORMATION
  Report Type: Spontaneous
  Country: PR (occurrence: PR)
  Receive Date: 20201029
  Receipt Date: 20201029
  Transmission Date: 20210114
  Serious: Yes (Hospitalization, Other)
  Sender: FDA-Public Use
  Company Number: PR-PFIZER INC-2019538878

PATIENT
  Age: 73 Year
  Sex: Female
  Weight: 79 kg

DRUGS (3)
  1. PROTONIX [Concomitant]
     Active Substance: PANTOPRAZOLE SODIUM
     Indication: CHRONIC GASTRITIS
     Dosage: 40 MG, 1X/DAY
  2. LYRICA [Suspect]
     Active Substance: PREGABALIN
     Indication: DIABETIC NEUROPATHY
     Dosage: 75 MG, 2X/DAY (ONE IN MORNING AND ONE AT NIGHT)
  3. LYRICA [Suspect]
     Active Substance: PREGABALIN
     Dosage: 75 MG, 2X/DAY(75MG, TWICE A DAY, ORALLY, MORNING AND IN AFTERNOON)
     Route: 048

REACTIONS (3)
  - Cardiac failure [Unknown]
  - Lung disorder [Unknown]
  - Nephropathy [Unknown]
